FAERS Safety Report 6266026-0 (Version None)
Quarter: 2009Q3

REPORT INFORMATION
  Report Type: 
  Country: None (occurrence: None)
  Receive Date: 20090713
  Receipt Date: 20090702
  Transmission Date: 20100115
  Serious: Yes (Death, Hospitalization)
  Sender: FDA-Public Use
  Company Number: CA-MERCK-0907USA00976

PATIENT
  Age: 8 Month
  Sex: Male

DRUGS (1)
  1. DECADRON [Suspect]
     Indication: MYELITIS
     Route: 048

REACTIONS (1)
  - POLYNEUROPATHY [None]
